FAERS Safety Report 10128945 (Version 1)
Quarter: 2014Q2

REPORT INFORMATION
  Report Type: Report from Study
  Country: AT (occurrence: AT)
  Receive Date: 20140428
  Receipt Date: 20140428
  Transmission Date: 20141212
  Serious: Yes (Life-Threatening, Hospitalization)
  Sender: FDA-Public Use
  Company Number: AT-ROCHE-1379341

PATIENT
  Age: 35 Year
  Sex: Male
  Weight: 80 kg

DRUGS (4)
  1. PEG-INTERFERON ALFA 2A [Suspect]
     Indication: HEPATITIS C
     Route: 058
     Dates: start: 20100508, end: 20110217
  2. PEG-INTERFERON ALFA 2A [Suspect]
     Route: 058
     Dates: start: 200809, end: 200905
  3. RIBAVIRIN [Suspect]
     Indication: HEPATITIS C
     Route: 048
     Dates: start: 20100508
  4. MIRTABENE [Concomitant]
     Dosage: AS NEEDED
     Route: 065

REACTIONS (3)
  - Weight decreased [Recovered/Resolved]
  - Leukopenia [Recovered/Resolved]
  - Pruritus [Recovered/Resolved]
